FAERS Safety Report 7257181-4 (Version None)
Quarter: 2011Q1

REPORT INFORMATION
  Report Type: 
  Country: None (occurrence: None)
  Receive Date: 20110129
  Receipt Date: 20100720
  Transmission Date: 20110831
  Serious: No
  Sender: FDA-Public Use
  Company Number: US-ABBOTT-10P-163-0658623-00

PATIENT
  Age: 60 Year
  Sex: Female

DRUGS (11)
  1. LEXAPRO [Concomitant]
     Indication: DEPRESSION
  2. TOBRADEX OTO [Concomitant]
     Route: 047
  3. PROTONIX [Concomitant]
     Indication: DYSPEPSIA
     Route: 048
  4. COUMADIN [Concomitant]
     Indication: THROMBOSIS
     Route: 048
  5. HUMIRA [Suspect]
     Indication: RHEUMATOID ARTHRITIS
     Dates: start: 20060101, end: 20100602
  6. METHOTREXATE [Concomitant]
     Indication: RHEUMATOID ARTHRITIS
  7. TOBRADEX OTO [Concomitant]
     Indication: PRODUCT USED FOR UNKNOWN INDICATION
     Route: 047
  8. LYRICA [Concomitant]
     Indication: PAIN
  9. PROTONIX [Concomitant]
     Indication: GASTROOESOPHAGEAL REFLUX DISEASE
  10. TRILIPIX [Concomitant]
     Indication: BLOOD CHOLESTEROL
     Route: 048
  11. SYNTHROID [Concomitant]
     Indication: HYPOTHYROIDISM
     Route: 048

REACTIONS (2)
  - HEADACHE [None]
  - HERPES ZOSTER [None]
